FAERS Safety Report 9308524 (Version 1)
Quarter: 2013Q2

REPORT INFORMATION
  Report Type: Spontaneous
  Country: US (occurrence: US)
  Receive Date: 20130524
  Receipt Date: 20130524
  Transmission Date: 20140414
  Serious: Yes (Death, Hospitalization)
  Sender: FDA-Public Use
  Company Number: US-ACTELION-A-US2012-70463

PATIENT
  Age: 25 Year
  Sex: Female

DRUGS (4)
  1. TRACLEER [Suspect]
     Indication: PULMONARY ARTERIAL HYPERTENSION
     Dosage: UNK
     Route: 048
     Dates: end: 20130227
  2. VELETRI [Suspect]
     Indication: PULMONARY ARTERIAL HYPERTENSION
     Route: 042
  3. REMODULIN [Concomitant]
  4. ADCIRCA [Concomitant]

REACTIONS (7)
  - Pulmonary hypertension [Fatal]
  - Condition aggravated [Fatal]
  - Hypoxia [Fatal]
  - Dyspnoea [Fatal]
  - Oxygen saturation decreased [Fatal]
  - Cyanosis [Fatal]
  - Supraventricular tachycardia [Recovering/Resolving]
